FAERS Safety Report 8625934-3 (Version None)
Quarter: 2012Q3

REPORT INFORMATION
  Report Type: 
  Country: None (occurrence: None)
  Receive Date: 20120827
  Receipt Date: 20120816
  Transmission Date: 20120928
  Serious: Yes (Hospitalization)
  Sender: FDA-Public Use
  Company Number: JP-VERTEX PHARMACEUTICAL INC.-2012-019867

PATIENT
  Age: 62 Year
  Sex: Female

DRUGS (12)
  1. RIBAVIRIN [Concomitant]
     Indication: HEPATITIS C
     Dosage: 600 MG, QD
     Route: 048
     Dates: start: 20120218, end: 20120316
  2. RIBAVIRIN [Concomitant]
     Dosage: 600 MG, QD
     Route: 048
     Dates: start: 20120609, end: 20120730
  3. PEG-INTRON [Concomitant]
     Dosage: 1.5 UNK, UNK
     Route: 058
     Dates: start: 20120218, end: 20120728
  4. PROMAC                             /01312301/ [Concomitant]
     Dosage: 1 G, QD
     Route: 048
  5. RIBAVIRIN [Concomitant]
     Dosage: 200 MG, QD
     Route: 048
     Dates: start: 20120428, end: 20120525
  6. RIBAVIRIN [Concomitant]
     Dosage: 400 MG, QD
     Route: 048
     Dates: start: 20120526, end: 20120608
  7. CLARITIN REDITABS [Concomitant]
     Dosage: 10 MG, QD
     Route: 048
  8. RABEPRAZOLE SODIUM [Concomitant]
     Dosage: 10 MG, QD
     Route: 048
  9. VX-950 [Suspect]
     Indication: HEPATITIS C
     Dosage: 1500 MG, QD
     Route: 048
     Dates: start: 20120218, end: 20120512
  10. RIBAVIRIN [Concomitant]
     Dosage: 400 MG, QD
     Route: 048
     Dates: start: 20120317, end: 20120427
  11. SEDEKOPAN [Concomitant]
     Dosage: 1 MG, QD
     Route: 048
     Dates: start: 20120310
  12. SEDEKOPAN [Concomitant]
     Dosage: 1 MG, QD
     Route: 048

REACTIONS (1)
  - PNEUMONIA [None]
